FAERS Safety Report 10487566 (Version 2)
Quarter: 2014Q4

REPORT INFORMATION
  Report Type: Report from Study
  Country: US (occurrence: US)
  Receive Date: 20141001
  Receipt Date: 20141007
  Transmission Date: 20150528
  Serious: Yes (Hospitalization)
  Sender: FDA-Public Use
  Company Number: GXBR2014US002127

PATIENT
  Sex: Female

DRUGS (2)
  1. ENOXAPARIN SODIUM. [Suspect]
     Active Substance: ENOXAPARIN SODIUM
     Dosage: UNK DF, UNK
     Dates: start: 20140822
  2. CHEMOTHERAPEUTICS NOS [Concomitant]
     Active Substance: UNSPECIFIED INGREDIENT
     Indication: PANCREATIC CARCINOMA
     Dosage: UNK DF, UNK

REACTIONS (2)
  - Cough [Recovering/Resolving]
  - Dyspnoea [Recovering/Resolving]
